FAERS Safety Report 20051546 (Version 1)
Quarter: 2021Q4

REPORT INFORMATION
  Report Type: Report from Study
  Country: US (occurrence: US)
  Receive Date: 20211110
  Receipt Date: 20211110
  Transmission Date: 20220303
  Serious: Yes (Hospitalization, Other)
  Sender: FDA-Public Use
  Company Number: US-ABBVIE-21K-163-4149333-00

PATIENT
  Sex: Male

DRUGS (2)
  1. IMBRUVICA [Interacting]
     Active Substance: IBRUTINIB
     Indication: Chronic lymphocytic leukaemia
     Route: 048
     Dates: start: 20210405, end: 20210713
  2. MODERNA COVID-19 VACCINE [Concomitant]
     Active Substance: CX-024414
     Indication: COVID-19 immunisation
     Dosage: MODERNA
     Route: 030
     Dates: start: 202110, end: 202110

REACTIONS (11)
  - Road traffic accident [Recovering/Resolving]
  - Coma [Unknown]
  - Pneumonia [Recovering/Resolving]
  - Legionella infection [Recovering/Resolving]
  - Sepsis [Recovering/Resolving]
  - Renal failure [Unknown]
  - Peripheral swelling [Recovered/Resolved]
  - Rash [Recovered/Resolved]
  - Weight decreased [Unknown]
  - Red blood cell count decreased [Unknown]
  - Drug interaction [Recovered/Resolved]

NARRATIVE: CASE EVENT DATE: 20210101
